FAERS Safety Report 4425377-2 (Version None)
Quarter: 2004Q3

REPORT INFORMATION
  Report Type: 
  Country: None (occurrence: None)
  Receive Date: 20040813
  Receipt Date: 20040806
  Transmission Date: 20050211
  Serious: Yes (Other)
  Sender: FDA-Public Use
  Company Number: US-GLAXOSMITHKLINE-A0521279A

PATIENT
  Age: 6 Year
  Sex: Male

DRUGS (3)
  1. WELLBUTRIN [Suspect]
     Indication: ATTENTION DEFICIT/HYPERACTIVITY DISORDER
     Dosage: 37.5MG PER DAY
     Route: 048
  2. STRATTERA [Concomitant]
  3. CLONIDINE HCL [Concomitant]

REACTIONS (2)
  - HALLUCINATION [None]
  - MEDICATION ERROR [None]
